FAERS Safety Report 12546291 (Version 1)
Quarter: 2016Q3

REPORT INFORMATION
  Report Type: Spontaneous
  Country: MA (occurrence: MA)
  Receive Date: 20160711
  Receipt Date: 20160711
  Transmission Date: 20161109
  Serious: Yes (Congenital Anomaly)
  Sender: FDA-Public Use
  Company Number: MA-NOVOPROD-499867

PATIENT

DRUGS (1)
  1. LEVEMIR [Suspect]
     Active Substance: INSULIN DETEMIR
     Indication: DIABETES MELLITUS
     Dosage: UNK
     Route: 064

REACTIONS (3)
  - Brain malformation [Not Recovered/Not Resolved]
  - Foetal malformation [Not Recovered/Not Resolved]
  - Foetal exposure during pregnancy [Unknown]
